FAERS Safety Report 8302704-7 (Version None)
Quarter: 2012Q2

REPORT INFORMATION
  Report Type: 
  Country: None (occurrence: None)
  Receive Date: 20120420
  Receipt Date: 20120403
  Transmission Date: 20120825
  Serious: Yes (Hospitalization)
  Sender: FDA-Public Use
  Company Number: IT-BAXTER-2012BAX002068

PATIENT
  Sex: Male

DRUGS (10)
  1. LAMIVUDINE [Concomitant]
     Route: 048
     Dates: start: 20111215, end: 20120125
  2. CYCLOPHOSPHAMIDE [Suspect]
     Route: 042
     Dates: start: 20111215, end: 20120105
  3. MABTHERA [Suspect]
     Route: 042
     Dates: start: 20111222, end: 20120104
  4. MYELOSTIM [Suspect]
     Indication: NEUTROPENIA
     Dosage: 33.6 MIU
     Route: 058
     Dates: start: 20120110, end: 20120115
  5. LEVOFLOXACIN [Concomitant]
     Route: 048
     Dates: start: 20120111, end: 20120118
  6. BACTRIM [Concomitant]
     Route: 048
     Dates: start: 20111215, end: 20120125
  7. DOXORUBICIN HCL [Suspect]
     Route: 042
     Dates: start: 20111215, end: 20120105
  8. VINCRISTINE [Suspect]
     Route: 040
     Dates: start: 20111215, end: 20120105
  9. PREDNISONE TAB [Concomitant]
     Route: 048
     Dates: start: 20120106, end: 20120116
  10. SPORANOX [Concomitant]
     Route: 048
     Dates: start: 20111215, end: 20120125

REACTIONS (4)
  - DIARRHOEA [None]
  - ABDOMINAL DISTENSION [None]
  - BONE PAIN [None]
  - ORAL DISCOMFORT [None]
